FAERS Safety Report 5678341-X (Version None)
Quarter: 2008Q1

REPORT INFORMATION
  Report Type: 
  Country: None (occurrence: None)
  Receive Date: 20080320
  Receipt Date: 20080215
  Transmission Date: 20080703
  Serious: Yes (Hospitalization, Other)
  Sender: FDA-Public Use
  Company Number: 2008S1002647

PATIENT
  Age: 79 Year
  Sex: Male

DRUGS (5)
  1. BACLOFEN [Suspect]
     Indication: ACCIDENTAL EXPOSURE
     Dosage: ORAL
     Route: 048
  2. DILTIAZEM [Concomitant]
  3. ACETYLSALICYLIC ACID SRT [Concomitant]
  4. FUROSEMIDE [Concomitant]
  5. CANDESARTAN CILEXETIL [Concomitant]

REACTIONS (25)
  - ACCIDENTAL EXPOSURE [None]
  - BLOOD CREATININE INCREASED [None]
  - BLOOD GLUCOSE INCREASED [None]
  - BLOOD PH DECREASED [None]
  - BLOOD POTASSIUM INCREASED [None]
  - BLOOD PRESSURE SYSTOLIC INCREASED [None]
  - BLOOD UREA INCREASED [None]
  - BODY TEMPERATURE DECREASED [None]
  - BRADYPNOEA [None]
  - CARBON DIOXIDE DECREASED [None]
  - CEREBRAL ATROPHY [None]
  - CEREBRAL ISCHAEMIA [None]
  - COMA [None]
  - CONVULSION [None]
  - DRUG INEFFECTIVE [None]
  - DRUG LEVEL BELOW THERAPEUTIC [None]
  - DRUG TOXICITY [None]
  - HEART RATE INCREASED [None]
  - HYPOTONIA [None]
  - LOSS OF CONSCIOUSNESS [None]
  - MIOSIS [None]
  - MOUTH INJURY [None]
  - PCO2 DECREASED [None]
  - POSTICTAL STATE [None]
  - RESPIRATORY RATE INCREASED [None]
